FAERS Safety Report 9549988 (Version 4)
Quarter: 2014Q1

REPORT INFORMATION
  Report Type: Spontaneous
  Country: US (occurrence: US)
  Receive Date: 20130924
  Receipt Date: 20140224
  Transmission Date: 20141002
  Serious: Yes (Hospitalization)
  Sender: FDA-Public Use
  Company Number: US-GLAXOSMITHKLINE-A0742036A

PATIENT
  Age: 45 Year
  Sex: Male
  Weight: 156.8 kg

DRUGS (2)
  1. AVANDARYL [Suspect]
     Indication: TYPE 2 DIABETES MELLITUS
     Route: 048
     Dates: start: 20060731, end: 20061219
  2. GLUCOPHAGE [Concomitant]

REACTIONS (5)
  - Ischaemic cardiomyopathy [Unknown]
  - Acute myocardial infarction [Unknown]
  - Cardiac failure congestive [Unknown]
  - Heart transplant [Unknown]
  - Heart transplant rejection [Unknown]
